FAERS Safety Report 5763959-6 (Version None)
Quarter: 2008Q2

REPORT INFORMATION
  Report Type: 
  Country: None (occurrence: None)
  Receive Date: 20080602
  Receipt Date: 20080602
  Transmission Date: 20081010
  Serious: Yes (Hospitalization)
  Sender: FDA-Public Use
  Company Number: None

PATIENT
  Age: 49 Year
  Sex: Male
  Weight: 119 kg

DRUGS (5)
  1. PIOGLITAZONE [Suspect]
     Indication: TYPE 2 DIABETES MELLITUS
     Dosage: 1 TABLET DAILY ORAL/PREVIOUS 6 MONTHS
     Route: 048
  2. DOXYCYCLINE [Concomitant]
  3. DOXYLAMINE [Concomitant]
  4. ONDANSETRON [Concomitant]
  5. GLIMEPIRIDE [Suspect]

REACTIONS (13)
  - ABDOMINAL PAIN [None]
  - ASTHENIA [None]
  - BRONCHITIS [None]
  - CHILLS [None]
  - DYSURIA [None]
  - FATIGUE [None]
  - HEPATITIS [None]
  - HYPERBILIRUBINAEMIA [None]
  - HYPOKALAEMIA [None]
  - HYPONATRAEMIA [None]
  - INFECTIOUS MONONUCLEOSIS [None]
  - LETHARGY [None]
  - NAUSEA [None]
